FAERS Safety Report 6862676-9 (Version None)
Quarter: 2010Q3

REPORT INFORMATION
  Report Type: 
  Country: None (occurrence: None)
  Receive Date: 20100721
  Receipt Date: 20100712
  Transmission Date: 20110219
  Serious: Yes (Death)
  Sender: FDA-Public Use
  Company Number: US-NOVOPROD-311378

PATIENT
  Age: 80 Year
  Sex: Female
  Weight: 81.2 kg

DRUGS (1)
  1. NOVOSEVEN RT [Suspect]
     Indication: ACQUIRED HAEMOPHILIA
     Dosage: 90 UG/KG, Q 3 HOURS
     Route: 042
     Dates: start: 20100618, end: 20100625

REACTIONS (1)
  - DEATH [None]
